FAERS Safety Report 7524454-7 (Version None)
Quarter: 2011Q2

REPORT INFORMATION
  Report Type: 
  Country: None (occurrence: None)
  Receive Date: 20110606
  Receipt Date: 20110120
  Transmission Date: 20111010
  Serious: Yes (Hospitalization, Other)
  Sender: FDA-Public Use
  Company Number: US-BAYER-201037485NA

PATIENT
  Age: 26 Year
  Sex: Female
  Weight: 69.841 kg

DRUGS (6)
  1. SYMAX DUOTAB [Concomitant]
  2. CLARITIN [Concomitant]
  3. NAPROXEN [Concomitant]
     Dosage: UNK
     Dates: start: 20060101
  4. YAZ [Suspect]
     Indication: CONTRACEPTION
     Dosage: UNK
     Route: 048
     Dates: start: 20070124, end: 20071001
  5. REBIF [Concomitant]
  6. AMANTADINE HCL [Concomitant]

REACTIONS (7)
  - GALLBLADDER INJURY [None]
  - PAIN [None]
  - SCAR [None]
  - EMOTIONAL DISTRESS [None]
  - INJURY [None]
  - CHOLECYSTITIS CHRONIC [None]
  - CHOLELITHIASIS [None]
